FAERS Safety Report 11057882 (Version 1)
Quarter: 2015Q2

REPORT INFORMATION
  Report Type: Spontaneous
  Country: BR (occurrence: BR)
  Receive Date: 20150423
  Receipt Date: 20150423
  Transmission Date: 20150821
  Serious: Yes (Other)
  Sender: FDA-Public Use
  Company Number: BR-PFIZER INC-2015132580

PATIENT
  Age: 63 Year
  Sex: Female
  Weight: 64 kg

DRUGS (3)
  1. LYRICA [Suspect]
     Active Substance: PREGABALIN
     Dosage: LYRICA, STRENGTH 75 MG
     Route: 048
     Dates: start: 2010, end: 2010
  2. ARISTAB [Concomitant]
     Indication: ANTIDEPRESSANT THERAPY
     Dosage: 1 TABLET, AT NIGHT
     Dates: start: 2013
  3. PRISTIQ EXTENDED RELEASE [Concomitant]
     Active Substance: DESVENLAFAXINE SUCCINATE
     Indication: ANTIDEPRESSANT THERAPY
     Dosage: 1 TABLET (100 MG), DAILY
     Dates: start: 2013

REACTIONS (8)
  - Spinal cord disorder [Not Recovered/Not Resolved]
  - Gait disturbance [Not Recovered/Not Resolved]
  - Fibromyalgia [Unknown]
  - Spinal pain [Not Recovered/Not Resolved]
  - Hernia [Unknown]
  - Kyphosis [Unknown]
  - Spondylolisthesis [Not Recovered/Not Resolved]
  - Osteoarthritis [Unknown]
